FAERS Safety Report 15357801 (Version 1)
Quarter: 2018Q3

REPORT INFORMATION
  Report Type: Spontaneous
  Country: US (occurrence: US)
  Receive Date: 20180906
  Receipt Date: 20180906
  Transmission Date: 20181010
  Serious: No
  Sender: FDA-Public Use
  Company Number: US-ASTRAZENECA-2018SF08627

PATIENT
  Sex: Male
  Weight: 105.2 kg

DRUGS (2)
  1. FASENRA [Suspect]
     Active Substance: BENRALIZUMAB
     Indication: ASTHMA
     Dosage: 30.0MG/ML UNKNOWN
     Route: 058
     Dates: start: 20180501
  2. FASENRA [Suspect]
     Active Substance: BENRALIZUMAB
     Indication: RHINITIS ALLERGIC
     Dosage: 30.0MG/ML UNKNOWN
     Route: 058
     Dates: start: 20180501

REACTIONS (2)
  - Drug effect decreased [Not Recovered/Not Resolved]
  - Spirometry abnormal [Not Recovered/Not Resolved]

NARRATIVE: CASE EVENT DATE: 20180501
